FAERS Safety Report 22208831 (Version 1)
Quarter: 2023Q2

REPORT INFORMATION
  Report Type: Spontaneous
  Country: US (occurrence: US)
  Receive Date: 20230413
  Receipt Date: 20230413
  Transmission Date: 20230721
  Serious: No
  Sender: FDA-Public Use
  Company Number: US-PFIZER INC-202300151830

PATIENT
  Age: 56 Year
  Sex: Female
  Weight: 71.1 kg

DRUGS (1)
  1. NURTEC ODT [Suspect]
     Active Substance: RIMEGEPANT SULFATE
     Indication: Migraine
     Dosage: UNK
     Dates: start: 20230320

REACTIONS (5)
  - Visual impairment [Unknown]
  - Vision blurred [Unknown]
  - Nausea [Unknown]
  - Impatience [Unknown]
  - Psychiatric symptom [Unknown]
